FAERS Safety Report 13904765 (Version 2)
Quarter: 2017Q4

REPORT INFORMATION
  Report Type: Spontaneous
  Country: US (occurrence: US)
  Receive Date: 20170825
  Receipt Date: 20171024
  Transmission Date: 20180320
  Serious: No
  Sender: FDA-Public Use
  Company Number: US-PFIZER INC-2017367176

PATIENT
  Age: 44 Year
  Sex: Female

DRUGS (1)
  1. SUTENT [Suspect]
     Active Substance: SUNITINIB MALATE
     Indication: CONNECTIVE TISSUE NEOPLASM
     Dosage: 50 MG, CYCLIC, (FOR 4 WEEKS OF A 6 WEEK TREATMENT CYCLE (4 WEEKS ON, 2 WEEKS OFF))
     Route: 048
     Dates: start: 201707

REACTIONS (5)
  - Urinary tract infection [Unknown]
  - Pain [Unknown]
  - Hyperhidrosis [Unknown]
  - Drug dose omission [Unknown]
  - Product use in unapproved indication [Unknown]

NARRATIVE: CASE EVENT DATE: 201707
